FAERS Safety Report 9801455 (Version 1)
Quarter: 2014Q1

REPORT INFORMATION
  Report Type: Spontaneous
  Country: US (occurrence: US)
  Receive Date: 20140107
  Receipt Date: 20140107
  Transmission Date: 20141002
  Serious: Yes (Death, Other)
  Sender: FDA-Public Use
  Company Number: US-UCBSA-107849

PATIENT
  Age: 37 Year
  Sex: Male

DRUGS (5)
  1. ALPRAZOLAM [Suspect]
     Dosage: ROUTE: INGESTION
     Route: 048
  2. METHYLPHENIDATE [Suspect]
     Dosage: ROUTE: INGESTION
     Route: 048
  3. MORPHINE [Suspect]
     Dosage: ROUTE: INGESTION
     Route: 048
  4. OXYCODONE [Suspect]
     Dosage: ROUTE: INGESTION
     Route: 048
  5. ACETAMINOPHEN [Suspect]
     Dosage: ROUTE: INGESTION
     Route: 048

REACTIONS (1)
  - Drug abuse [Fatal]
